FAERS Safety Report 24697760 (Version 2)
Quarter: 2025Q1

REPORT INFORMATION
  Report Type: Spontaneous
  Country: US (occurrence: US)
  Receive Date: 20241204
  Receipt Date: 20250211
  Transmission Date: 20250409
  Serious: No
  Sender: SANOFI AVENTIS
  Company Number: US-SA-2024SA345925

PATIENT
  Age: 2 Year
  Sex: Male
  Weight: 10.23 kg

DRUGS (2)
  1. DUPIXENT [Suspect]
     Active Substance: DUPILUMAB
     Indication: Dermatitis atopic
     Dosage: 200 MG, Q4W
     Route: 058
     Dates: start: 20241031
  2. EPIPEN JR [Concomitant]
     Active Substance: EPINEPHRINE

REACTIONS (4)
  - Milk allergy [Recovered/Resolved]
  - Dermatitis atopic [Recovered/Resolved]
  - Pruritus [Unknown]
  - Therapeutic response shortened [Unknown]

NARRATIVE: CASE EVENT DATE: 20250129
